FAERS Safety Report 25625405 (Version 1)
Quarter: 2025Q3

REPORT INFORMATION
  Report Type: Spontaneous
  Country: US (occurrence: US)
  Receive Date: 20250731
  Receipt Date: 20250731
  Transmission Date: 20251021
  Serious: Yes (Other)
  Sender: BRISTOL-MYERS SQUIBB COMPANY
  Company Number: US-BRISTOL-MYERS SQUIBB COMPANY-2025-106209

PATIENT
  Age: 70 Year
  Sex: Female

DRUGS (1)
  1. REVLIMID [Suspect]
     Active Substance: LENALIDOMIDE
     Indication: Cystitis
     Dosage: TAKE A?CAPSULE BY?ORAL ROUTE?DAILY?FOR 3?WEEKS?FOLLOWED BY 1?WEEK OF?REST
     Route: 048

REACTIONS (1)
  - Breast cancer [Unknown]
